FAERS Safety Report 12959090 (Version 4)
Quarter: 2017Q1

REPORT INFORMATION
  Report Type: Spontaneous
  Country: US (occurrence: US)
  Receive Date: 20161121
  Receipt Date: 20170222
  Transmission Date: 20170428
  Serious: Yes (Other)
  Sender: FDA-Public Use
  Company Number: US-JNJFOC-20150411034

PATIENT
  Age: 65 Year
  Sex: Female
  Weight: 54 kg

DRUGS (26)
  1. IMBRUVICA [Suspect]
     Active Substance: IBRUTINIB
     Indication: WALDENSTROM^S MACROGLOBULINAEMIA
     Route: 048
     Dates: start: 20170118
  2. IMBRUVICA [Suspect]
     Active Substance: IBRUTINIB
     Indication: WALDENSTROM^S MACROGLOBULINAEMIA
     Route: 048
     Dates: start: 2016
  3. TYLENOL WITH CODEINE [Concomitant]
     Active Substance: ACETAMINOPHEN\CODEINE PHOSPHATE
  4. VIIBRYD [Concomitant]
     Active Substance: VILAZODONE HYDROCHLORIDE
  5. COMPAZINE [Concomitant]
     Active Substance: PROCHLORPERAZINE MALEATE
  6. IMBRUVICA [Suspect]
     Active Substance: IBRUTINIB
     Indication: WALDENSTROM^S MACROGLOBULINAEMIA
     Route: 048
     Dates: start: 20160913
  7. FLEXERIL [Concomitant]
     Active Substance: CYCLOBENZAPRINE HYDROCHLORIDE
  8. BUSPIRONE HCL [Concomitant]
     Active Substance: BUSPIRONE HYDROCHLORIDE
  9. PRILOSEC [Concomitant]
     Active Substance: OMEPRAZOLE MAGNESIUM
  10. XANAX [Concomitant]
     Active Substance: ALPRAZOLAM
  11. ADVIL [Concomitant]
     Active Substance: IBUPROFEN
  12. VITAMIN C [Concomitant]
     Active Substance: ASCORBIC ACID
  13. LAMICTAL [Concomitant]
     Active Substance: LAMOTRIGINE
  14. PROPRANOLOL HCL [Concomitant]
     Active Substance: PROPRANOLOL HYDROCHLORIDE
  15. ALLOPURINOL. [Concomitant]
     Active Substance: ALLOPURINOL
  16. PERCOCET [Concomitant]
     Active Substance: ACETAMINOPHEN\OXYCODONE HYDROCHLORIDE
  17. OMEGA 3 [Concomitant]
     Active Substance: OMEGA-3 FATTY ACIDS
  18. ZOFRAN [Concomitant]
     Active Substance: ONDANSETRON HYDROCHLORIDE
  19. RITALIN [Concomitant]
     Active Substance: METHYLPHENIDATE HYDROCHLORIDE
  20. ACYCLOVIR. [Concomitant]
     Active Substance: ACYCLOVIR
  21. IMBRUVICA [Suspect]
     Active Substance: IBRUTINIB
     Indication: WALDENSTROM^S MACROGLOBULINAEMIA
     Dosage: 420 MG, QD
     Route: 048
     Dates: start: 20150326
  22. CLARITIN-D 12 HOUR [Concomitant]
     Active Substance: LORATADINE\PSEUDOEPHEDRINE SULFATE
  23. FLONASE [Concomitant]
     Active Substance: FLUTICASONE PROPIONATE
  24. GEODON [Concomitant]
     Active Substance: ZIPRASIDONE HYDROCHLORIDE\ZIPRASIDONE MESYLATE
  25. ACTIVELLA [Concomitant]
     Active Substance: ESTRADIOL\NORETHINDRONE ACETATE
  26. VITAMIN B COMPLEX [Concomitant]
     Active Substance: CYANOCOBALAMIN\DEXPANTHENOL\NIACINAMIDE\PYRIDOXINE HYDROCHLORIDE\RIBOFLAVIN 5^-PHOSPHATE SODIUM\THIAMINE HYDROCHLORIDE\VITAMIN B COMPLEX

REACTIONS (9)
  - Abdominal discomfort [Recovered/Resolved]
  - Dry eye [Recovering/Resolving]
  - Fatigue [Unknown]
  - Off label use [Recovered/Resolved]
  - Product use issue [Recovered/Resolved]
  - Decreased appetite [Recovered/Resolved]
  - Hysterectomy [Recovered/Resolved]
  - Diarrhoea [Recovered/Resolved]
  - Bladder irritation [Not Recovered/Not Resolved]

NARRATIVE: CASE EVENT DATE: 20150326
